FAERS Safety Report 6726976-5 (Version None)
Quarter: 2010Q2

REPORT INFORMATION
  Report Type: 
  Country: None (occurrence: None)
  Receive Date: 20100517
  Receipt Date: 20100511
  Transmission Date: 20101027
  Serious: No
  Sender: FDA-Public Use
  Company Number: US-BIOGENIDEC-2010BI015508

PATIENT
  Age: 43 Year
  Sex: Female

DRUGS (7)
  1. AVONEX [Suspect]
     Indication: MULTIPLE SCLEROSIS
     Route: 030
     Dates: start: 20100412, end: 20100418
  2. AVONEX [Suspect]
     Route: 030
     Dates: start: 20100419, end: 20100425
  3. AVONEX [Suspect]
     Route: 030
     Dates: start: 20100426, end: 20100502
  4. AVONEX [Suspect]
     Route: 030
     Dates: start: 20100503
  5. AMBIEN [Concomitant]
  6. XANAX [Concomitant]
  7. CALRITIN [Concomitant]

REACTIONS (5)
  - BLOOD IMMUNOGLOBULIN A DECREASED [None]
  - HEADACHE [None]
  - HUNGER [None]
  - SLEEP DISORDER [None]
  - SWELLING [None]
